FAERS Safety Report 23799319 (Version 1)
Quarter: 2024Q2

REPORT INFORMATION
  Report Type: Spontaneous
  Country: US (occurrence: None)
  Receive Date: 20240428
  Receipt Date: 20240428
  Transmission Date: 20240715
  Serious: Yes (Hospitalization)
  Sender: FDA-Public Use
  Company Number: None

PATIENT
  Age: 79 Year
  Sex: Male
  Weight: 93 kg

DRUGS (2)
  1. APIXABAN [Suspect]
     Active Substance: APIXABAN
     Indication: Atrial fibrillation
     Dates: start: 20200928, end: 20230318
  2. ASPIRIN [Suspect]
     Active Substance: ASPIRIN
     Indication: Cerebrovascular accident prophylaxis
     Dates: start: 20200806, end: 20230318

REACTIONS (6)
  - Gastrointestinal haemorrhage [None]
  - Hypotension [None]
  - Hypovolaemic shock [None]
  - Red blood cell transfusion [None]
  - Transfusion [None]
  - Rectal haemorrhage [None]

NARRATIVE: CASE EVENT DATE: 20230318
